FAERS Safety Report 8308842-7 (Version None)
Quarter: 2012Q2

REPORT INFORMATION
  Report Type: 
  Country: None (occurrence: None)
  Receive Date: 20120421
  Receipt Date: 20120421
  Transmission Date: 20120825
  Serious: Yes (Hospitalization)
  Sender: FDA-Public Use
  Company Number: None

PATIENT
  Sex: Female
  Weight: 98.3 kg

DRUGS (1)
  1. FASLODEX [Suspect]
     Dosage: 500 MG
     Dates: end: 20120320

REACTIONS (2)
  - ILEUS [None]
  - PNEUMONIA [None]
